FAERS Safety Report 13933311 (Version 1)
Quarter: 2017Q3

REPORT INFORMATION
  Report Type: Report from Study
  Country: IN (occurrence: IN)
  Receive Date: 20170904
  Receipt Date: 20170904
  Transmission Date: 20171127
  Serious: Yes (Other)
  Sender: FDA-Public Use
  Company Number: IN-BAXTER-2017BAX029346

PATIENT
  Age: 55 Year
  Sex: Female

DRUGS (1)
  1. LOW CALCIUM PERITONEAL DIALYSIS SOLUTION WITH 2.5% DEXTROSE [Suspect]
     Active Substance: CALCIUM CHLORIDE\DEXTROSE\MAGNESIUM CHLORIDE\SODIUM CHLORIDE\SODIUM LACTATE
     Indication: PERITONEAL DIALYSIS
     Route: 033

REACTIONS (4)
  - Hypophagia [Recovered/Resolved]
  - Asthenia [Recovered/Resolved]
  - Hypokinesia [Recovered/Resolved]
  - Malaise [Recovered/Resolved]
